FAERS Safety Report 9252257 (Version 1)
Quarter: 2013Q2

REPORT INFORMATION
  Report Type: Spontaneous
  Country: PT (occurrence: PT)
  Receive Date: 20130424
  Receipt Date: 20130424
  Transmission Date: 20140414
  Serious: Yes (Death)
  Sender: FDA-Public Use
  Company Number: PHHY2013PT039081

PATIENT
  Age: 82 Year
  Sex: Male

DRUGS (3)
  1. ANAFRANIL [Suspect]
     Indication: DEPRESSION
     Route: 048
     Dates: start: 20121201, end: 20130311
  2. VENLAFAXINE HYDROCHLORIDE [Interacting]
     Indication: DEPRESSION
     Route: 048
     Dates: start: 20130220, end: 20130311
  3. AMITRIPTYLINE HYDROCHLORIDE [Suspect]
     Indication: DEPRESSION
     Route: 048
     Dates: start: 20120920, end: 20130303

REACTIONS (7)
  - Serotonin syndrome [Fatal]
  - Hallucination [Fatal]
  - Pyrexia [Fatal]
  - Confusional state [Fatal]
  - Agitation [Fatal]
  - Musculoskeletal stiffness [Fatal]
  - Drug interaction [Fatal]
